FAERS Safety Report 10200175 (Version 2)
Quarter: 2014Q2

REPORT INFORMATION
  Report Type: Report from Study
  Country: US (occurrence: US)
  Receive Date: 20140527
  Receipt Date: 20140527
  Transmission Date: 20141212
  Serious: Yes (Life-Threatening, Hospitalization, Other)
  Sender: FDA-Public Use
  Company Number: US-MILLENNIUM-2014MPI001220

PATIENT
  Age: 28 Year
  Sex: Female
  Weight: 52.9 kg

DRUGS (1)
  1. MLN0002 [Suspect]
     Indication: CROHN^S DISEASE
     Dosage: 300 MG, Q4WEEKS
     Route: 042
     Dates: start: 20110630

REACTIONS (30)
  - Septic shock [Recovered/Resolved with Sequelae]
  - Pneumonia [Recovered/Resolved with Sequelae]
  - Streptococcal bacteraemia [None]
  - Muscle tightness [None]
  - Alanine aminotransferase increased [None]
  - Aspartate aminotransferase increased [None]
  - Blood alkaline phosphatase increased [None]
  - Blood chloride increased [None]
  - Blood potassium decreased [None]
  - Carbon dioxide decreased [None]
  - Lipase increased [None]
  - Platelet count decreased [None]
  - PO2 decreased [None]
  - Blood lactic acid increased [None]
  - Platelet count increased [None]
  - Procalcitonin increased [None]
  - White blood cells urine positive [None]
  - Tonsillar disorder [None]
  - Erythema [None]
  - Blood bilirubin increased [None]
  - Biliary dilatation [None]
  - Lung consolidation [None]
  - Bronchial wall thickening [None]
  - Inflammatory bowel disease [None]
  - Gastrointestinal infection [None]
  - Ascites [None]
  - Pulmonary oedema [None]
  - Pleural effusion [None]
  - Atelectasis [None]
  - Pneumonia [None]
